FAERS Safety Report 24528513 (Version 1)
Quarter: 2024Q4

REPORT INFORMATION
  Report Type: Spontaneous
  Country: GB (occurrence: GB)
  Receive Date: 20241021
  Receipt Date: 20241021
  Transmission Date: 20250115
  Serious: Yes (Other)
  Sender: B BRAUN
  Company Number: GB-B.Braun Medical Inc.-2163435

PATIENT
  Age: 58 Year

DRUGS (16)
  1. SODIUM CHLORIDE [Suspect]
     Active Substance: SODIUM CHLORIDE
  2. CALCIUM CARBONATE\CHOLECALCIFEROL [Concomitant]
     Active Substance: CALCIUM CARBONATE\CHOLECALCIFEROL
  3. TIOTROPIUM [Concomitant]
     Active Substance: TIOTROPIUM
  4. METHADONE [Concomitant]
     Active Substance: METHADONE HYDROCHLORIDE
  5. SENNA [Concomitant]
     Active Substance: SENNA LEAF\SENNOSIDES\SENNOSIDES A AND B
  6. ALBUTEROL [Concomitant]
     Active Substance: ALBUTEROL
  7. OLANZAPINE [Concomitant]
     Active Substance: OLANZAPINE
  8. LORAZEPAM [Concomitant]
     Active Substance: LORAZEPAM
  9. ENOXAPARIN [Concomitant]
     Active Substance: ENOXAPARIN
  10. FOLIC ACID [Concomitant]
     Active Substance: FOLIC ACID
  11. SYMBICORT [Concomitant]
     Active Substance: BUDESONIDE\FORMOTEROL FUMARATE DIHYDRATE
  12. THEOPHYLLINE [Concomitant]
     Active Substance: THEOPHYLLINE
  13. PREDNISOLONE [Concomitant]
     Active Substance: PREDNISOLONE
  14. MIRTAZAPINE [Concomitant]
     Active Substance: MIRTAZAPINE
  15. POLYETHYLENE GLYCOLS [Concomitant]
     Active Substance: POLYETHYLENE GLYCOLS
  16. CARBOCYSTEINE [Concomitant]
     Active Substance: CARBOCYSTEINE

REACTIONS (2)
  - Bronchospasm [Unknown]
  - Off label use [Unknown]
